FAERS Safety Report 9433922 (Version 1)
Quarter: 2013Q3

REPORT INFORMATION
  Report Type: Spontaneous
  Country: IL (occurrence: IL)
  Receive Date: 20130801
  Receipt Date: 20130801
  Transmission Date: 20140515
  Serious: Yes (Other)
  Sender: FDA-Public Use
  Company Number: PHHY2013IL078640

PATIENT
  Age: 45 Year
  Sex: Male

DRUGS (6)
  1. RIFAMPIN [Suspect]
     Indication: TUBERCULOSIS
  2. ISONIAZID [Suspect]
     Indication: TUBERCULOSIS
  3. OFLOXACIN [Suspect]
     Indication: TUBERCULOSIS
  4. PYRAZINAMIDE [Suspect]
     Indication: TUBERCULOSIS
  5. ETHAMBUTOL [Suspect]
     Indication: TUBERCULOSIS
  6. RITUXIMAB [Suspect]
     Indication: DIFFUSE LARGE B-CELL LYMPHOMA STAGE IV

REACTIONS (8)
  - Paradoxical drug reaction [Recovered/Resolved]
  - Immune reconstitution inflammatory syndrome [Recovered/Resolved]
  - Pyrexia [Recovered/Resolved]
  - Night sweats [Recovered/Resolved]
  - Erythema [Recovered/Resolved]
  - Lymphadenopathy [Recovered/Resolved]
  - Skin warm [Recovered/Resolved]
  - Drug resistance [Unknown]
